FAERS Safety Report 17903287 (Version 2)
Quarter: 2020Q3

REPORT INFORMATION
  Report Type: Spontaneous
  Country: VN (occurrence: VN)
  Receive Date: 20200617
  Receipt Date: 20200706
  Transmission Date: 20201103
  Serious: Yes (Other)
  Sender: FDA-Public Use
  Company Number: VN-B.I. PHARMACEUTICALS,INC./RIDGEFIELD-2020-BI-029688

PATIENT
  Age: 70 Year
  Sex: Female

DRUGS (4)
  1. GILOTRIF [Suspect]
     Active Substance: AFATINIB
     Route: 065
  2. GILOTRIF [Suspect]
     Active Substance: AFATINIB
     Indication: NON-SMALL CELL LUNG CANCER
     Route: 065
     Dates: start: 20200423
  3. DEXAMETHASONE. [Concomitant]
     Active Substance: DEXAMETHASONE
     Indication: METASTASES TO CENTRAL NERVOUS SYSTEM
     Route: 065
  4. GILOTRIF [Suspect]
     Active Substance: AFATINIB
     Indication: EGFR GENE MUTATION
     Route: 065

REACTIONS (3)
  - Diarrhoea [Unknown]
  - Gastrointestinal haemorrhage [Recovered/Resolved]
  - Gastrointestinal haemorrhage [Recovered/Resolved]

NARRATIVE: CASE EVENT DATE: 20200513
